FAERS Safety Report 11712989 (Version 1)
Quarter: 2015Q4

REPORT INFORMATION
  Report Type: Report from Study
  Country: GB (occurrence: UG)
  Receive Date: 20151108
  Receipt Date: 20151108
  Transmission Date: 20160304
  Serious: Yes (Other)
  Sender: FDA-Public Use
  Company Number: GB-BRISTOL-MYERS SQUIBB COMPANY-14251854

PATIENT
  Age: 29 Year
  Sex: Female

DRUGS (3)
  1. ALUVIA [Suspect]
     Active Substance: LOPINAVIR\RITONAVIR
     Indication: RETROVIRAL INFECTION
     Dosage: 1000 MG, QD
     Route: 048
     Dates: start: 20070502
  2. VIDEX [Suspect]
     Active Substance: DIDANOSINE
     Indication: RETROVIRAL INFECTION
     Dosage: 250 MG, QD
     Route: 048
     Dates: start: 20061018
  3. EFAVIRENZ [Suspect]
     Active Substance: EFAVIRENZ
     Indication: RETROVIRAL INFECTION
     Dosage: 600 MG, QD
     Route: 048
     Dates: start: 20061018

REACTIONS (2)
  - Abortion induced [Unknown]
  - Maternal exposure during pregnancy [Recovered/Resolved]

NARRATIVE: CASE EVENT DATE: 20071118
